FAERS Safety Report 21975943 (Version 1)
Quarter: 2023Q1

REPORT INFORMATION
  Report Type: Spontaneous
  Country: JP (occurrence: JP)
  Receive Date: 20230210
  Receipt Date: 20230210
  Transmission Date: 20230418
  Serious: Yes (Hospitalization, Other)
  Sender: FDA-Public Use
  Company Number: JP-NOVOPROD-1015431

PATIENT
  Age: 69 Year
  Sex: Male

DRUGS (1)
  1. NOVORAPID [Suspect]
     Active Substance: INSULIN ASPART
     Indication: Pancreatogenous diabetes
     Dosage: 18 IU, QD
     Dates: start: 201409, end: 202112

REACTIONS (4)
  - Pulmonary oedema [Unknown]
  - Respiratory failure [Unknown]
  - Hypoglycaemic unconsciousness [Recovered/Resolved]
  - Stress cardiomyopathy [Unknown]

NARRATIVE: CASE EVENT DATE: 20211201
